FAERS Safety Report 20951032 (Version 1)
Quarter: 2022Q2

REPORT INFORMATION
  Report Type: Spontaneous
  Country: US (occurrence: None)
  Receive Date: 20220610
  Receipt Date: 20220610
  Transmission Date: 20220721
  Serious: No
  Sender: FDA-Public Use
  Company Number: None

PATIENT
  Sex: Female

DRUGS (22)
  1. AMBRISENTAN [Suspect]
     Active Substance: AMBRISENTAN
     Indication: Pulmonary arterial hypertension
     Dosage: FREQUENCY : DAILY;?
     Route: 048
  2. ACTEMRA [Concomitant]
     Active Substance: TOCILIZUMAB
  3. COLACE [Concomitant]
     Active Substance: DOCUSATE SODIUM
  4. ZOFRAN [Concomitant]
     Active Substance: ONDANSETRON HYDROCHLORIDE
  5. ROPINIROLE HYDROCHLORIDE [Concomitant]
     Active Substance: ROPINIROLE HYDROCHLORIDE
  6. LIDOCAINE [Concomitant]
     Active Substance: LIDOCAINE
  7. ALBUTEROL SULFATE [Concomitant]
     Active Substance: ALBUTEROL SULFATE
  8. VITAMIN B12 [Concomitant]
     Active Substance: CYANOCOBALAMIN
  9. HYDROCODONE BITARTRATE/AC [Concomitant]
  10. BREO ELLIPTA [Concomitant]
     Active Substance: FLUTICASONE FUROATE\VILANTEROL TRIFENATATE
  11. HYDROMORPHONE HCL [Concomitant]
     Active Substance: HYDROMORPHONE HYDROCHLORIDE
  12. ZOLOFT [Concomitant]
     Active Substance: SERTRALINE HYDROCHLORIDE
  13. PANTOPRAZOLE SODIUM [Concomitant]
     Active Substance: PANTOPRAZOLE SODIUM
  14. MORPHINE SULFATE [Concomitant]
     Active Substance: MORPHINE SULFATE
  15. CELLCEPT [Concomitant]
     Active Substance: MYCOPHENOLATE MOFETIL
  16. PREDNISONE [Concomitant]
     Active Substance: PREDNISONE
  17. LORATADINE [Concomitant]
     Active Substance: LORATADINE
  18. ALYQ [Concomitant]
     Active Substance: TADALAFIL
  19. HYDROXYZINE HYDROCHLORIDE \ TOPAMAX |ZANAFLEX [Concomitant]
  20. PROAIR HFA   |DOXYCYCLINE HYCLATE   |XANAX   |BIOTIN [Concomitant]
  21. BIOTIN   |SEROQUEL   |MORPHINE SULFATE   |SCOPOLAMINE   |ADCIRCA [Concomitant]
  22. REQUIP  |SOLU-MEDROL   |FUROSEMIDE   |REMODULIN [Concomitant]

REACTIONS (2)
  - Bronchitis [None]
  - Cough [None]
